FAERS Safety Report 7168253-7 (Version None)
Quarter: 2010Q4

REPORT INFORMATION
  Report Type: 
  Country: None (occurrence: None)
  Receive Date: 20101216
  Receipt Date: 20101203
  Transmission Date: 20110411
  Serious: Yes (Hospitalization)
  Sender: FDA-Public Use
  Company Number: IN-MYLANLABS-2010S1022538

PATIENT
  Sex: Male

DRUGS (3)
  1. PHENYTOIN [Suspect]
     Indication: GRAND MAL CONVULSION
     Route: 065
  2. PHENYTOIN [Suspect]
     Route: 065
  3. PHENYTOIN [Suspect]
     Route: 065

REACTIONS (3)
  - DEPENDENCE [None]
  - DRUG WITHDRAWAL SYNDROME [None]
  - GINGIVAL HYPERTROPHY [None]
